FAERS Safety Report 4601864-9 (Version None)
Quarter: 2005Q1

REPORT INFORMATION
  Report Type: 
  Country: None (occurrence: None)
  Receive Date: 20050131
  Receipt Date: 20041229
  Transmission Date: 20050727
  Serious: No
  Sender: FDA-Public Use
  Company Number: 200419095US

PATIENT
  Age: 52 Year
  Sex: Female

DRUGS (12)
  1. TELITHROMYCIN (KETEK) TABLETS [Suspect]
     Indication: BRONCHITIS
     Dosage: 800 MG QD PO
     Route: 048
     Dates: start: 20041025, end: 20041029
  2. TELITHROMYCIN (KETEK) TABLETS [Suspect]
     Indication: RHINITIS
     Dosage: 800 MG QD PO
     Route: 048
     Dates: start: 20041025, end: 20041029
  3. AMITRIPTYLINE HYDROCHLORIDE [Suspect]
     Indication: INSOMNIA
     Dosage: 25 MG HS PO
     Route: 048
  4. INFLUENZA VIRUS VACCINE POLYVALENT (FLU SHOT) [Concomitant]
  5. ACETYLSALICYLIC ACID SRT [Concomitant]
  6. CALCIUM GLUCONATE [Concomitant]
  7. ALLEGRA [Concomitant]
  8. DESLORATADINE [Concomitant]
  9. CELEBREX [Concomitant]
  10. ALLERGENS [Concomitant]
  11. FLUTICASONE PROPIONATE (FLONASE) [Concomitant]
  12. ELAVIL [Concomitant]

REACTIONS (1)
  - VISION BLURRED [None]
